FAERS Safety Report 5806159-3 (Version None)
Quarter: 2008Q3

REPORT INFORMATION
  Report Type: 
  Country: None (occurrence: None)
  Receive Date: 20080710
  Receipt Date: 20080702
  Transmission Date: 20090109
  Serious: Yes (Other)
  Sender: FDA-Public Use
  Company Number: US-AVENTIS-200816311GDDC

PATIENT
  Age: 53 Year
  Sex: Female

DRUGS (9)
  1. LEFLUNOMIDE [Suspect]
     Route: 048
     Dates: start: 20041025
  2. ENBREL [Suspect]
     Indication: RHEUMATOID ARTHRITIS
     Route: 058
     Dates: start: 20050124, end: 20050830
  3. PREDNISOLONE [Concomitant]
     Dates: start: 20050101
  4. LANSOPRAZOLE [Concomitant]
     Dates: start: 20020101
  5. ALBUTEROL SULFATE [Concomitant]
     Dates: start: 20020101
  6. SINEMET [Concomitant]
     Dates: start: 20020101
  7. POTASSIUM CHLORIDE [Concomitant]
  8. ALPRAZOLAM [Concomitant]
     Dates: start: 20050101
  9. FLUTICASONE/SALMETEROL [Concomitant]
     Dates: start: 20020101

REACTIONS (1)
  - LUNG NEOPLASM [None]
